FAERS Safety Report 17228110 (Version 1)
Quarter: 2020Q1

REPORT INFORMATION
  Report Type: Spontaneous
  Country: GB (occurrence: GB)
  Receive Date: 20200103
  Receipt Date: 20200103
  Transmission Date: 20200409
  Serious: Yes (Life-Threatening)
  Sender: FDA-Public Use
  Company Number: GB-TEVA-2019-GB-1160615

PATIENT
  Age: 66 Year
  Sex: Female
  Weight: 91.8 kg

DRUGS (2)
  1. TIMODINE [Concomitant]
     Dosage: APPLY THINLY , 3 DOSAGE FORMS 1 DAYS
     Dates: start: 20190917
  2. INDAPAMIDE. [Suspect]
     Active Substance: INDAPAMIDE
     Dosage: 2.5 MG
     Route: 048

REACTIONS (1)
  - Vomiting [Recovered/Resolved]
